FAERS Safety Report 9779389 (Version 1)
Quarter: 2013Q4

REPORT INFORMATION
  Report Type: Spontaneous
  Country: GB (occurrence: GB)
  Receive Date: 20131223
  Receipt Date: 20131223
  Transmission Date: 20140711
  Serious: Yes (Other)
  Sender: FDA-Public Use
  Company Number: GB-ASTRAZENECA-2013SE90709

PATIENT
  Age: 43 Year
  Sex: Female
  Weight: 80 kg

DRUGS (1)
  1. XYLOCAINE WITH ADRENALINE [Suspect]
     Indication: ANALGESIC THERAPY
     Route: 002
     Dates: start: 20131125, end: 20131125

REACTIONS (3)
  - Pallor [Recovered/Resolved]
  - Blindness transient [Recovered/Resolved]
  - Tachycardia [Recovered/Resolved]
